FAERS Safety Report 21491609 (Version 2)
Quarter: 2022Q4

REPORT INFORMATION
  Report Type: Spontaneous
  Country: JP (occurrence: JP)
  Receive Date: 20221021
  Receipt Date: 20221028
  Transmission Date: 20230113
  Serious: Yes (Hospitalization, Other)
  Sender: FDA-Public Use
  Company Number: JP-MYLANLABS-2022M1114436

PATIENT
  Age: 51 Year
  Sex: Male

DRUGS (4)
  1. AMLODIPINE [Suspect]
     Active Substance: AMLODIPINE BESYLATE
     Indication: Hypertension
     Dosage: 30 MILLIGRAM, OVERDOSE
     Route: 065
  2. LEVETIRACETAM [Suspect]
     Active Substance: LEVETIRACETAM
     Indication: Epilepsy
     Dosage: 200000 MILLIGRAM, OVERDOSE
     Route: 065
  3. TELMISARTAN [Suspect]
     Active Substance: TELMISARTAN
     Indication: Hypertension
     Dosage: 480 MILLIGRAM, OVERDOSE
     Route: 065
  4. BROTIZOLAM [Suspect]
     Active Substance: BROTIZOLAM
     Indication: Product used for unknown indication
     Dosage: 1.5 MILLIGRAM, OVERDOSE
     Route: 065

REACTIONS (9)
  - Suicide attempt [Unknown]
  - Blood pressure decreased [Unknown]
  - Altered state of consciousness [Unknown]
  - Hypotension [Unknown]
  - Acute kidney injury [Recovering/Resolving]
  - Toxicity to various agents [Recovering/Resolving]
  - Oliguria [Unknown]
  - Blood creatinine increased [Unknown]
  - Intentional overdose [Unknown]
